FAERS Safety Report 4771517-5 (Version None)
Quarter: 2005Q3

REPORT INFORMATION
  Report Type: 
  Country: None (occurrence: None)
  Receive Date: 20050913
  Receipt Date: 20050913
  Transmission Date: 20060218
  Serious: Yes (Life-Threatening, Hospitalization)
  Sender: FDA-Public Use
  Company Number: None

PATIENT
  Sex: Female
  Weight: 14.4 kg

DRUGS (1)
  1. OMNICEF [Suspect]
     Indication: OTITIS MEDIA ACUTE
     Dosage: 4ML ONCE DAILY PO
     Route: 048

REACTIONS (3)
  - INFECTION [None]
  - PYREXIA [None]
  - RASH GENERALISED [None]
